FAERS Safety Report 4990694-4 (Version None)
Quarter: 2006Q2

REPORT INFORMATION
  Report Type: 
  Country: None (occurrence: None)
  Receive Date: 20060427
  Receipt Date: 20060418
  Transmission Date: 20061013
  Serious: Yes (Other)
  Sender: FDA-Public Use
  Company Number: 430116K05USA

PATIENT
  Age: 27 Year
  Sex: Female

DRUGS (4)
  1. NOVANTRONE [Suspect]
     Indication: MULTIPLE SCLEROSIS
     Dosage: 18 MG, ONCE, INTRAVENOUS; 1 COURSE
     Route: 042
     Dates: start: 20050411, end: 20050411
  2. NOVANTRONE [Suspect]
     Indication: MULTIPLE SCLEROSIS
     Dosage: 18 MG, ONCE, INTRAVENOUS; 1 COURSE
     Route: 042
     Dates: start: 20010501
  3. NOVANTRONE [Suspect]
     Indication: MULTIPLE SCLEROSIS
     Dosage: 18 MG, ONCE, INTRAVENOUS; 1 COURSE
     Route: 042
     Dates: start: 20040701
  4. REBIF [Concomitant]

REACTIONS (3)
  - HAEMOGLOBIN DECREASED [None]
  - PLATELET COUNT DECREASED [None]
  - WHITE BLOOD CELL COUNT DECREASED [None]
